FAERS Safety Report 16266754 (Version 2)
Quarter: 2019Q2

REPORT INFORMATION
  Report Type: Spontaneous
  Country: US (occurrence: US)
  Receive Date: 20190502
  Receipt Date: 20190517
  Transmission Date: 20190711
  Serious: No
  Sender: FDA-Public Use
  Company Number: US-SA-2019SA116913

PATIENT
  Age: 13 Year
  Sex: Female
  Weight: 54 kg

DRUGS (2)
  1. DUPIXENT [Suspect]
     Active Substance: DUPILUMAB
     Indication: DERMATITIS ATOPIC
     Dosage: 300 MG, 1X
     Route: 058
     Dates: start: 20190416, end: 20190416
  2. DUPIXENT [Suspect]
     Active Substance: DUPILUMAB
     Dosage: 300 MG, QOW
     Route: 058
     Dates: start: 20190430

REACTIONS (3)
  - Off label use [Unknown]
  - Injection site pain [Recovered/Resolved]
  - Product prescribing error [Unknown]

NARRATIVE: CASE EVENT DATE: 20190416
